FAERS Safety Report 9028573 (Version 9)
Quarter: 2014Q4

REPORT INFORMATION
  Report Type: Spontaneous
  Country: US (occurrence: US)
  Receive Date: 20130124
  Receipt Date: 20141216
  Transmission Date: 20150529
  Serious: Yes (Death, Hospitalization, Other)
  Sender: FDA-Public Use
  Company Number: US-GLAXOSMITHKLINE-A1009497A

PATIENT
  Sex: Male
  Weight: 153 kg

DRUGS (1)
  1. AVANDIA [Suspect]
     Active Substance: ROSIGLITAZONE MALEATE
     Indication: DIABETES MELLITUS
     Dosage: 4 MG, UNK
     Route: 048
     Dates: start: 2000, end: 200705

REACTIONS (9)
  - Cardiac failure congestive [Unknown]
  - Cardiomegaly [Fatal]
  - Renal failure [Unknown]
  - Coronary artery disease [Unknown]
  - Arteriosclerosis coronary artery [Fatal]
  - Angina pectoris [Not Recovered/Not Resolved]
  - Chronic obstructive pulmonary disease [Fatal]
  - Hypertension [Unknown]
  - Arterial occlusive disease [Unknown]
